FAERS Safety Report 19961475 (Version 1)
Quarter: 2021Q4

REPORT INFORMATION
  Report Type: Spontaneous
  Country: GB (occurrence: GB)
  Receive Date: 20211017
  Receipt Date: 20211017
  Transmission Date: 20220303
  Serious: Yes (Other)
  Sender: FDA-Public Use
  Company Number: GB-ASCEND THERAPEUTICS US, LLC-2120644

PATIENT
  Sex: Female
  Weight: 76.2 kg

DRUGS (3)
  1. ESTROGEL [Suspect]
     Active Substance: ESTRADIOL
     Indication: Menopausal symptoms
     Route: 062
     Dates: start: 20210901, end: 20210917
  2. ESTROGEL [Suspect]
     Active Substance: ESTRADIOL
  3. ESTRADIOL [Suspect]
     Active Substance: ESTRADIOL
     Route: 062
     Dates: start: 20210901, end: 20210917

REACTIONS (1)
  - Premature menopause [Recovered/Resolved with Sequelae]
